FAERS Safety Report 26177232 (Version 1)
Quarter: 2025Q4

REPORT INFORMATION
  Report Type: Report from Study
  Country: US (occurrence: US)
  Receive Date: 20251219
  Receipt Date: 20251219
  Transmission Date: 20260117
  Serious: Yes (Hospitalization)
  Sender: ABBVIE
  Company Number: US-ABBVIE-6596246

PATIENT
  Age: 81 Year
  Sex: Female
  Weight: 83.914 kg

DRUGS (2)
  1. RESTASIS [Suspect]
     Active Substance: CYCLOSPORINE
     Indication: Dry eye
     Dosage: FREQUENCY : 1 DROPS ON BOTH EYES UP TO 3X A DAY?FORM STRENGTH 0.05 PERCENT
     Route: 065
     Dates: start: 2023
  2. MULTAQ [Concomitant]
     Active Substance: DRONEDARONE
     Indication: Medical device implantation

REACTIONS (3)
  - Pneumonia [Recovered/Resolved]
  - Dehydration [Recovered/Resolved]
  - Asthenia [Recovered/Resolved]

NARRATIVE: CASE EVENT DATE: 20251125
